FAERS Safety Report 22034129 (Version 1)
Quarter: 2023Q1

REPORT INFORMATION
  Report Type: Spontaneous
  Country: US (occurrence: US)
  Receive Date: 20230224
  Receipt Date: 20230224
  Transmission Date: 20230417
  Serious: No
  Sender: FDA-Public Use
  Company Number: US-GALDERMA-US2023002144

PATIENT

DRUGS (1)
  1. DIFFERIN GEL [Suspect]
     Active Substance: ADAPALENE
     Indication: Product used for unknown indication
     Dosage: 1 DOSAGE FORM, ONCE EVERY 1-2 DAYS
     Route: 061

REACTIONS (6)
  - Skin injury [Unknown]
  - Skin irritation [Unknown]
  - Dry skin [Unknown]
  - Skin exfoliation [Unknown]
  - Inappropriate schedule of product administration [Recovered/Resolved]
  - Underdose [Recovered/Resolved]
